FAERS Safety Report 9955243 (Version 1)
Quarter: 2014Q1

REPORT INFORMATION
  Report Type: Spontaneous
  Country: US (occurrence: US)
  Receive Date: 20140304
  Receipt Date: 20140304
  Transmission Date: 20141002
  Serious: No
  Sender: FDA-Public Use
  Company Number: US-ABBVIE-13P-163-1075740-00

PATIENT
  Age: 31 Year
  Sex: Female

DRUGS (2)
  1. HUMIRA [Suspect]
     Indication: PSORIASIS
     Route: 058
     Dates: start: 2010, end: 2010
  2. HUMIRA [Suspect]
     Route: 058
     Dates: start: 2010, end: 2012

REACTIONS (2)
  - Tuberculin test positive [Unknown]
  - Psoriasis [Not Recovered/Not Resolved]
